FAERS Safety Report 9482184 (Version 1)
Quarter: 2013Q3

REPORT INFORMATION
  Report Type: Report from Study
  Country: CA (occurrence: CA)
  Receive Date: 20130828
  Receipt Date: 20130828
  Transmission Date: 20140515
  Serious: Yes (Other)
  Sender: FDA-Public Use
  Company Number: CA-JNJFOC-20130813549

PATIENT
  Age: 32 Year
  Sex: Female
  Weight: 53.5 kg

DRUGS (1)
  1. REMICADE [Suspect]
     Indication: CROHN^S DISEASE
     Route: 042
     Dates: start: 20130820, end: 20130820

REACTIONS (6)
  - Infusion related reaction [Recovering/Resolving]
  - Malaise [Recovering/Resolving]
  - Muscle spasms [Recovering/Resolving]
  - Headache [Recovering/Resolving]
  - Pallor [Recovering/Resolving]
  - Skin discolouration [Recovering/Resolving]
